FAERS Safety Report 7271013-X (Version None)
Quarter: 2011Q1

REPORT INFORMATION
  Report Type: 
  Country: None (occurrence: None)
  Receive Date: 20110202
  Receipt Date: 20110121
  Transmission Date: 20110831
  Serious: Yes (Other)
  Sender: FDA-Public Use
  Company Number: CA-ELI_LILLY_AND_COMPANY-CA201101005607

PATIENT
  Age: 92 Year
  Sex: Female

DRUGS (16)
  1. CELEBREX [Concomitant]
     Dosage: 100 MG, DAILY (1/D)
  2. FUCITHALMIC [Concomitant]
     Dosage: UNK, DAILY (1/D)
  3. TRAZODONE HCL [Concomitant]
     Dosage: 25 MG, DAILY (1/D)
  4. COLACE [Concomitant]
     Dosage: 1TAB, DAILY (1/D)
  5. SENOKOT [Concomitant]
     Dosage: 2TAB EACH EVENING
  6. ATROVENT [Concomitant]
     Dosage: 2PUFFS, UNK
  7. TYLENOL WITH CODEIN #3 [Concomitant]
     Dosage: 1TAB, 3/D
  8. VITAMIN B-12 [Concomitant]
     Dosage: 500 MG, DAILY (1/D)
  9. FORTEO [Suspect]
     Indication: OSTEOPOROSIS
     Dosage: 20 UG, DAILY (1/D)
     Route: 058
     Dates: start: 20090806
  10. NORVASC [Concomitant]
     Dosage: 5 MG, DAILY (1/D)
  11. CLONAZEPAM [Concomitant]
     Dosage: 1 MG, DAILY (1/D)
  12. ALTACE [Concomitant]
     Dosage: 1 TAB, DAILY (1/D)
  13. TYLENOL (CAPLET) [Concomitant]
     Dosage: 650 MG, 3/D
  14. CALTRATE [Concomitant]
     Dosage: 2TAB, DAILY
  15. XALATAN [Concomitant]
  16. SPIRIVA [Concomitant]

REACTIONS (1)
  - BREAST CANCER [None]
